FAERS Safety Report 19498015 (Version 1)
Quarter: 2021Q3

REPORT INFORMATION
  Report Type: Spontaneous
  Country: US (occurrence: US)
  Receive Date: 20210706
  Receipt Date: 20210706
  Transmission Date: 20211014
  Serious: Yes (Other)
  Sender: FDA-Public Use
  Company Number: US-INDIVIOR US-INDV-125061-2020

PATIENT

DRUGS (4)
  1. BUPRENORPHINE TABLET [Suspect]
     Active Substance: BUPRENORPHINE
     Indication: INTENTIONAL SELF-INJURY
     Dosage: 2?4 MG/D
     Route: 065
  2. BUPRENORPHINE TRANSDERMAL SYSTEM [Suspect]
     Active Substance: BUPRENORPHINE
     Indication: INTENTIONAL SELF-INJURY
  3. BUPRENORPHINE TABLET [Suspect]
     Active Substance: BUPRENORPHINE
     Indication: ASPHYXIA
     Dosage: UNK
     Route: 065
  4. BUPRENORPHINE TRANSDERMAL SYSTEM [Suspect]
     Active Substance: BUPRENORPHINE
     Indication: ASPHYXIA
     Dosage: UNK
     Route: 065

REACTIONS (3)
  - Intentional self-injury [Unknown]
  - Off label use [Unknown]
  - Therapy naive [Unknown]
